FAERS Safety Report 23156583 (Version 1)
Quarter: 2023Q4

REPORT INFORMATION
  Report Type: Spontaneous
  Country: US (occurrence: US)
  Receive Date: 20231107
  Receipt Date: 20231107
  Transmission Date: 20240109
  Serious: Yes (Other)
  Sender: FDA-Public Use
  Company Number: US-AUROBINDO-AUR-APL-2023-066955

PATIENT
  Sex: Male

DRUGS (1)
  1. FINASTERIDE [Suspect]
     Active Substance: FINASTERIDE
     Indication: Product used for unknown indication
     Dosage: UNK
     Route: 065

REACTIONS (10)
  - Hallucination [Unknown]
  - Pain [Unknown]
  - Metamorphopsia [Unknown]
  - Reading disorder [Unknown]
  - Hypoacusis [Unknown]
  - Fatigue [Unknown]
  - Breast tenderness [Unknown]
  - Lipoma [Unknown]
  - Apathy [Unknown]
  - Therapy cessation [Unknown]

NARRATIVE: CASE EVENT DATE: 20230901
